FAERS Safety Report 19610321 (Version 1)
Quarter: 2021Q3

REPORT INFORMATION
  Report Type: Spontaneous
  Country: US (occurrence: US)
  Receive Date: 20210726
  Receipt Date: 20210726
  Transmission Date: 20211014
  Serious: Yes (Other)
  Sender: FDA-Public Use
  Company Number: US-BRAINTREE LABORATORIES, INC.-2021BTE00584

PATIENT
  Age: 51 Year
  Sex: Male
  Weight: 72.6 kg

DRUGS (1)
  1. SUTAB [Suspect]
     Active Substance: MAGNESIUM SULFATE\POTASSIUM CHLORIDE\SODIUM SULFATE
     Indication: COLONOSCOPY
     Dosage: 1 X 9 TABLETS, 1X
     Route: 048
     Dates: start: 20210705, end: 20210705

REACTIONS (2)
  - Abdominal distension [Recovered/Resolved]
  - Pharyngeal swelling [Recovered/Resolved]

NARRATIVE: CASE EVENT DATE: 20210705
